FAERS Safety Report 20531265 (Version 2)
Quarter: 2022Q1

REPORT INFORMATION
  Report Type: Spontaneous
  Country: US (occurrence: US)
  Receive Date: 20220301
  Receipt Date: 20220315
  Transmission Date: 20220423
  Serious: Yes (Death, Other)
  Sender: FDA-Public Use
  Company Number: US-GLAXOSMITHKLINE-US2022AMR036829

PATIENT
  Age: 93 Year
  Sex: Male
  Weight: 83.4 kg

DRUGS (4)
  1. SOTROVIMAB [Suspect]
     Active Substance: SOTROVIMAB
     Indication: COVID-19
     Dosage: 500 MG, ONCE
     Route: 041
     Dates: start: 20220213, end: 20220213
  2. COVID-19 PFIZER/BIONTECH VACCINE [Concomitant]
     Indication: Prophylaxis
     Dosage: UNK
     Dates: start: 20210126
  3. COVID-19 PFIZER/BIONTECH VACCINE [Concomitant]
     Indication: Prophylaxis
     Dosage: UNK
     Dates: start: 20210217
  4. PFIZER COVID-19 BOOSTER [Concomitant]
     Indication: Prophylaxis
     Dosage: UNK
     Dates: start: 20220110

REACTIONS (1)
  - Death [Fatal]

NARRATIVE: CASE EVENT DATE: 20220214
